FAERS Safety Report 8462956-X (Version None)
Quarter: 2012Q2

REPORT INFORMATION
  Report Type: 
  Country: None (occurrence: None)
  Receive Date: 20120625
  Receipt Date: 20111014
  Transmission Date: 20120825
  Serious: Yes (Hospitalization)
  Sender: FDA-Public Use
  Company Number: US-GLAXOSMITHKLINE-A0949142A

PATIENT
  Sex: Male

DRUGS (2)
  1. SPIRIVA [Concomitant]
  2. ADVAIR DISKUS 100/50 [Suspect]
     Dosage: 1PUFF TWICE PER DAY
     Route: 055
     Dates: start: 20100401

REACTIONS (7)
  - HYPERHIDROSIS [None]
  - PYREXIA [None]
  - PRODUCTIVE COUGH [None]
  - ADVERSE EVENT [None]
  - RESPIRATORY TRACT INFECTION [None]
  - LUNG INFECTION [None]
  - MALAISE [None]
